FAERS Safety Report 18908294 (Version 18)
Quarter: 2021Q3

REPORT INFORMATION
  Report Type: Report from Study
  Country: CN (occurrence: CN)
  Receive Date: 20210218
  Receipt Date: 20210909
  Transmission Date: 20211014
  Serious: Yes (Hospitalization)
  Sender: FDA-Public Use
  Company Number: CN-ROCHE-2768156

PATIENT
  Age: 57 Year
  Sex: Male
  Weight: 48 kg

DRUGS (64)
  1. MANNITOL. [Concomitant]
     Active Substance: MANNITOL
     Dates: start: 20210203, end: 20210203
  2. DIPHENHYDRAMINE HYDROCHLORIDE. [Concomitant]
     Active Substance: DIPHENHYDRAMINE HYDROCHLORIDE
     Dates: start: 20210309, end: 20210309
  3. ESOMEPRAZOLE SODIUM. [Concomitant]
     Active Substance: ESOMEPRAZOLE SODIUM
     Dates: start: 20210423, end: 20210423
  4. PALONOSETRON HYDROCHLORIDE. [Concomitant]
     Active Substance: PALONOSETRON HYDROCHLORIDE
     Dates: start: 20210514, end: 20210514
  5. POTASSIUM CHLORIDE. [Concomitant]
     Active Substance: POTASSIUM CHLORIDE
     Dates: start: 20210202, end: 20210202
  6. DEXAMETHASONE SODIUM PHOSPHATE. [Concomitant]
     Active Substance: DEXAMETHASONE SODIUM PHOSPHATE
     Indication: HYPERSENSITIVITY
     Route: 042
     Dates: start: 20210202, end: 20210202
  7. TORASEMIDE [Concomitant]
     Active Substance: TORSEMIDE
     Indication: POLYURIA
     Dates: start: 20210423, end: 20210423
  8. DIPHENHYDRAMINE HYDROCHLORIDE. [Concomitant]
     Active Substance: DIPHENHYDRAMINE HYDROCHLORIDE
     Dates: start: 20210423, end: 20210423
  9. PALONOSETRON HYDROCHLORIDE. [Concomitant]
     Active Substance: PALONOSETRON HYDROCHLORIDE
     Dates: start: 20210604, end: 20210604
  10. PALONOSETRON HYDROCHLORIDE. [Concomitant]
     Active Substance: PALONOSETRON HYDROCHLORIDE
     Dates: start: 20210203, end: 20210203
  11. FAMOTIDINE. [Concomitant]
     Active Substance: FAMOTIDINE
     Dates: start: 20210202, end: 20210202
  12. POTASSIUM CHLORIDE. [Concomitant]
     Active Substance: POTASSIUM CHLORIDE
     Dates: start: 20210423, end: 20210423
  13. POTASSIUM CHLORIDE. [Concomitant]
     Active Substance: POTASSIUM CHLORIDE
     Dates: start: 20210514, end: 20210516
  14. PACLITAXEL. [Suspect]
     Active Substance: PACLITAXEL
     Dosage: 175 KG/M2
     Route: 065
     Dates: start: 20210202
  15. DEXAMETHASONE SODIUM PHOSPHATE. [Concomitant]
     Active Substance: DEXAMETHASONE SODIUM PHOSPHATE
     Route: 042
     Dates: start: 20210514, end: 20210514
  16. DIPHENHYDRAMINE HYDROCHLORIDE. [Concomitant]
     Active Substance: DIPHENHYDRAMINE HYDROCHLORIDE
     Dates: start: 20210604, end: 20210604
  17. FAMOTIDINE. [Concomitant]
     Active Substance: FAMOTIDINE
     Dates: start: 20210514, end: 20210514
  18. COMPOUND ELECTROLYTES AND GLUCOSE INJECTION MG3 [Concomitant]
     Dates: start: 20210604, end: 20210606
  19. POTASSIUM CHLORIDE. [Concomitant]
     Active Substance: POTASSIUM CHLORIDE
     Route: 042
     Dates: start: 20210210, end: 20210215
  20. TORASEMIDE [Concomitant]
     Active Substance: TORSEMIDE
     Dates: start: 20210213, end: 20210213
  21. MANNITOL. [Concomitant]
     Active Substance: MANNITOL
     Dates: start: 20210514, end: 20210514
  22. DIPHENHYDRAMINE HYDROCHLORIDE. [Concomitant]
     Active Substance: DIPHENHYDRAMINE HYDROCHLORIDE
     Dates: start: 20210203, end: 20210203
  23. APREPITANT. [Concomitant]
     Active Substance: APREPITANT
     Dates: start: 20210202, end: 20210204
  24. FAMOTIDINE. [Concomitant]
     Active Substance: FAMOTIDINE
     Dates: start: 20210423, end: 20210423
  25. FAMOTIDINE. [Concomitant]
     Active Substance: FAMOTIDINE
     Dates: start: 20210604, end: 20210604
  26. COMPOUND ELECTROLYTES AND GLUCOSE INJECTION MG3 [Concomitant]
     Dates: start: 20210423, end: 20210423
  27. CETIRIZINE HYDROCHLORIDE. [Concomitant]
     Active Substance: CETIRIZINE HYDROCHLORIDE
     Indication: RASH
     Dates: start: 20210226
  28. TIRAGOLUMAB. [Suspect]
     Active Substance: TIRAGOLUMAB
     Indication: OESOPHAGEAL CARCINOMA
     Dosage: DATE OF MOST RECENT DOSE OF STUDY DRUG PRIOR TO AE ONSET: 02/FEB/2021.?DATE OF MOST RECENT DOSE OF S
     Route: 042
     Dates: start: 20210202
  29. PACLITAXEL. [Suspect]
     Active Substance: PACLITAXEL
     Indication: OESOPHAGEAL CARCINOMA
     Dosage: DATE OF MOST RECENT DOSE 270 MG OF STUDY DRUG PRIOR TO SAE ONSET: 03/FEB/2021.?175 MG/M^2 (AS PER PR
     Route: 042
     Dates: start: 20210203
  30. TORASEMIDE [Concomitant]
     Active Substance: TORSEMIDE
     Dates: start: 20210514, end: 20210516
  31. ESOMEPRAZOLE SODIUM. [Concomitant]
     Active Substance: ESOMEPRAZOLE SODIUM
     Dates: start: 20210202, end: 20210202
  32. ESOMEPRAZOLE SODIUM. [Concomitant]
     Active Substance: ESOMEPRAZOLE SODIUM
     Dates: start: 20210203, end: 20210204
  33. PALONOSETRON HYDROCHLORIDE. [Concomitant]
     Active Substance: PALONOSETRON HYDROCHLORIDE
     Dates: start: 20210423, end: 20210423
  34. PALONOSETRON HYDROCHLORIDE. [Concomitant]
     Active Substance: PALONOSETRON HYDROCHLORIDE
     Dates: start: 20210202, end: 20210202
  35. MOMETASONE FUROATE. [Concomitant]
     Active Substance: MOMETASONE FUROATE
     Indication: RASH
     Route: 062
     Dates: start: 20210226
  36. POTASSIUM CHLORIDE. [Concomitant]
     Active Substance: POTASSIUM CHLORIDE
     Dates: start: 20210604, end: 20210604
  37. POTASSIUM CHLORIDE. [Concomitant]
     Active Substance: POTASSIUM CHLORIDE
     Dates: start: 20210203, end: 20210204
  38. SODIUM CHLORIDE. [Concomitant]
     Active Substance: SODIUM CHLORIDE
     Dates: start: 20210604, end: 20210606
  39. GLUCOSE;SODIUM CHLORIDE [Concomitant]
     Active Substance: DEXTROSE\SODIUM CHLORIDE
     Dates: start: 20210514, end: 20210516
  40. FUROSEMIDE. [Concomitant]
     Active Substance: FUROSEMIDE
     Indication: POLYURIA
     Dates: start: 20210203, end: 20210204
  41. ATEZOLIZUMAB. [Suspect]
     Active Substance: ATEZOLIZUMAB
     Indication: OESOPHAGEAL CARCINOMA
     Dosage: DATE OF MOST RECENT DOSE OF STUDY DRUG PRIOR TO AE ONSET: 02/FEB/2021.?DATE OF MOST RECENT DOSE OF S
     Route: 042
     Dates: start: 20210202
  42. CISPLATIN. [Suspect]
     Active Substance: CISPLATIN
     Indication: OESOPHAGEAL CARCINOMA
     Dosage: DATE OF MOST RECENT DOSE 92 MG OF STUDY DRUG PRIOR TO SAE ONSET: 03/FEB/2021.?60?80 MG/M^2
     Route: 042
     Dates: start: 20210203
  43. DEXAMETHASONE SODIUM PHOSPHATE. [Concomitant]
     Active Substance: DEXAMETHASONE SODIUM PHOSPHATE
     Route: 042
     Dates: start: 20210604, end: 20210604
  44. DEXAMETHASONE SODIUM PHOSPHATE. [Concomitant]
     Active Substance: DEXAMETHASONE SODIUM PHOSPHATE
     Route: 042
     Dates: start: 20210203, end: 20210203
  45. TORASEMIDE [Concomitant]
     Active Substance: TORSEMIDE
     Dates: start: 20210604, end: 20210604
  46. ESOMEPRAZOLE SODIUM. [Concomitant]
     Active Substance: ESOMEPRAZOLE SODIUM
     Dates: start: 20210514, end: 20210516
  47. COMPOUND ELECTROLYTES AND GLUCOSE INJECTION MG3 [Concomitant]
     Dates: start: 20210514, end: 20210514
  48. SODIUM CHLORIDE. [Concomitant]
     Active Substance: SODIUM CHLORIDE
     Dates: start: 20210514, end: 20210516
  49. SODIUM CHLORIDE. [Concomitant]
     Active Substance: SODIUM CHLORIDE
     Dates: start: 20210210, end: 20210214
  50. DEXAMETHASONE SODIUM PHOSPHATE. [Concomitant]
     Active Substance: DEXAMETHASONE SODIUM PHOSPHATE
     Route: 042
     Dates: start: 20210423, end: 20210423
  51. MANNITOL. [Concomitant]
     Active Substance: MANNITOL
     Indication: POLYURIA
     Dates: start: 20210423, end: 20210423
  52. PROMETHAZINE HYDROCHLORIDE. [Concomitant]
     Active Substance: PROMETHAZINE HYDROCHLORIDE
     Dates: start: 20210309, end: 20210309
  53. ESOMEPRAZOLE SODIUM. [Concomitant]
     Active Substance: ESOMEPRAZOLE SODIUM
     Dates: start: 20210604, end: 20210604
  54. APREPITANT. [Concomitant]
     Active Substance: APREPITANT
     Dates: start: 20210604, end: 20210604
  55. FAMOTIDINE. [Concomitant]
     Active Substance: FAMOTIDINE
     Dates: start: 20210203, end: 20210203
  56. FUROSEMIDE. [Concomitant]
     Active Substance: FUROSEMIDE
     Route: 042
     Dates: start: 20210212, end: 20210212
  57. MANNITOL. [Concomitant]
     Active Substance: MANNITOL
     Dates: start: 20210604, end: 20210604
  58. DIPHENHYDRAMINE HYDROCHLORIDE. [Concomitant]
     Active Substance: DIPHENHYDRAMINE HYDROCHLORIDE
     Dates: start: 20210514, end: 20210514
  59. DIPHENHYDRAMINE HYDROCHLORIDE. [Concomitant]
     Active Substance: DIPHENHYDRAMINE HYDROCHLORIDE
     Dates: start: 20210202, end: 20210202
  60. APREPITANT. [Concomitant]
     Active Substance: APREPITANT
     Indication: NAUSEA
     Dates: start: 20210423, end: 20210423
  61. APREPITANT. [Concomitant]
     Active Substance: APREPITANT
     Dates: start: 20210514, end: 20210514
  62. SODIUM CHLORIDE. [Concomitant]
     Active Substance: SODIUM CHLORIDE
     Dates: start: 20210514, end: 20210514
  63. FUROSEMIDE. [Concomitant]
     Active Substance: FUROSEMIDE
     Route: 042
     Dates: start: 20210213, end: 20210213
  64. CAVIN [Concomitant]

REACTIONS (4)
  - Haemoglobin decreased [Recovered/Resolved]
  - Gastrointestinal haemorrhage [Recovered/Resolved]
  - Anaemia [Recovered/Resolved]
  - Upper gastrointestinal haemorrhage [Recovered/Resolved]

NARRATIVE: CASE EVENT DATE: 20210209
